FAERS Safety Report 16348126 (Version 1)
Quarter: 2019Q2

REPORT INFORMATION
  Report Type: Spontaneous
  Country: FR (occurrence: FR)
  Receive Date: 20190523
  Receipt Date: 20190523
  Transmission Date: 20190711
  Serious: Yes (Other)
  Sender: FDA-Public Use
  Company Number: FR-SA-2019SA134628

PATIENT
  Age: 39 Year

DRUGS (1)
  1. ZOLPIDEM TARTRATE. [Suspect]
     Active Substance: ZOLPIDEM TARTRATE
     Dosage: 20 MG, TOTAL
     Route: 042

REACTIONS (7)
  - Somnolence [Recovered/Resolved]
  - Drug dependence [Not Recovered/Not Resolved]
  - Miosis [Recovered/Resolved]
  - Intentional misuse of drug delivery system [Not Recovered/Not Resolved]
  - Oxygen saturation decreased [Recovered/Resolved]
  - Tachycardia [Recovered/Resolved]
  - Tachypnoea [Recovered/Resolved]
